FAERS Safety Report 8597412-1 (Version None)
Quarter: 2012Q3

REPORT INFORMATION
  Report Type: 
  Country: None (occurrence: None)
  Receive Date: 20120801
  Receipt Date: 20120720
  Transmission Date: 20120928
  Serious: Yes (Hospitalization)
  Sender: FDA-Public Use
  Company Number: DSA_58626_2012

PATIENT
  Sex: Male

DRUGS (8)
  1. DILTIAZEM [Suspect]
     Indication: PRODUCT USED FOR UNKNOWN INDICATION
     Dosage: (120 MG QD ORAL)
     Route: 048
     Dates: start: 20110511, end: 20120307
  2. LANTUS [Concomitant]
  3. REPAGLINIDE [Concomitant]
  4. FUROSEMIDE [Concomitant]
  5. COUMADIN [Concomitant]
  6. LANOXIN [Suspect]
     Indication: PRODUCT USED FOR UNKNOWN INDICATION
     Dosage: (1 DF QD ORAL)
     Route: 048
     Dates: start: 20110318, end: 20120307
  7. RAMIPRIL [Concomitant]
  8. ALLOPURINOL [Concomitant]

REACTIONS (8)
  - ABDOMINAL TENDERNESS [None]
  - CARDIAC FAILURE [None]
  - HYPERTENSION [None]
  - RENAL FAILURE CHRONIC [None]
  - DYSPNOEA [None]
  - DIABETES MELLITUS [None]
  - ASTHENIA [None]
  - BRADYARRHYTHMIA [None]
